FAERS Safety Report 21792587 (Version 2)
Quarter: 2023Q1

REPORT INFORMATION
  Report Type: Spontaneous
  Country: CZ (occurrence: CZ)
  Receive Date: 20221229
  Receipt Date: 20230125
  Transmission Date: 20230418
  Serious: Yes (Other)
  Sender: FDA-Public Use
  Company Number: CZ-009507513-2212CZE001296

PATIENT
  Age: 26 Year
  Sex: Female
  Weight: 80 kg

DRUGS (15)
  1. HYDROCORTISONE [Suspect]
     Active Substance: HYDROCORTISONE
     Indication: Anaphylactic shock
     Route: 042
  2. EPINEPHRINE [Suspect]
     Active Substance: EPINEPHRINE
     Indication: Anaphylactic shock
     Route: 042
  3. SEVOFLURANE [Suspect]
     Active Substance: SEVOFLURANE
     Indication: General anaesthesia
     Dosage: DOSE: MAXIMAL ALLOWABLE CONCENTRATION (MAH) 0.8
     Route: 055
  4. ROCURONIUM [Suspect]
     Active Substance: ROCURONIUM BROMIDE
     Indication: Hypotonia
     Route: 042
  5. NOREPINEPHRINE [Suspect]
     Active Substance: NOREPINEPHRINE
     Indication: Anaphylactic shock
     Route: 065
  6. AMINOPHYLLINE [Suspect]
     Active Substance: AMINOPHYLLINE
     Indication: Anaphylactic shock
     Route: 042
  7. MIDAZOLAM [Suspect]
     Active Substance: MIDAZOLAM
     Indication: General anaesthesia
     Route: 042
  8. SUGAMMADEX [Suspect]
     Active Substance: SUGAMMADEX
     Indication: Anaphylactic shock
     Dosage: (7.5 MG/ KG)
     Route: 042
  9. RINGERS SOLUTION [Suspect]
     Active Substance: CALCIUM CHLORIDE\POTASSIUM CHLORIDE\SODIUM CHLORIDE
     Indication: Anaphylactic shock
     Route: 065
  10. SUFENTANIL [Suspect]
     Active Substance: SUFENTANIL
     Indication: General anaesthesia
     Route: 042
  11. PROPOFOL [Suspect]
     Active Substance: PROPOFOL
     Indication: General anaesthesia
     Route: 042
  12. PROPOFOL [Suspect]
     Active Substance: PROPOFOL
     Route: 042
  13. CISATRACURIUM [Suspect]
     Active Substance: CISATRACURIUM
     Indication: Hypotonia
     Route: 065
  14. OXYGEN [Suspect]
     Active Substance: OXYGEN
     Indication: Oxygen therapy
     Dosage: PRE-OXYGENATION
     Route: 065
  15. OXYGEN [Suspect]
     Active Substance: OXYGEN
     Dosage: VENTILATED WITH 100% OXYGEN
     Route: 065

REACTIONS (2)
  - Drug ineffective [Unknown]
  - Maternal exposure during pregnancy [Unknown]
